FAERS Safety Report 10889792 (Version 2)
Quarter: 2015Q1

REPORT INFORMATION
  Report Type: Spontaneous
  Country: JP (occurrence: JP)
  Receive Date: 20150305
  Receipt Date: 20150325
  Transmission Date: 20150721
  Serious: Yes (Hospitalization, Congenital Anomaly)
  Sender: FDA-Public Use
  Company Number: JP-ASTRAZENECA-2015SE20481

PATIENT
  Age: 0 Day
  Sex: Male
  Weight: 3 kg

DRUGS (19)
  1. JZOLOFT [Concomitant]
     Active Substance: SERTRALINE HYDROCHLORIDE
     Route: 064
     Dates: start: 20131106, end: 20140115
  2. NORVASC [Concomitant]
     Active Substance: AMLODIPINE BESYLATE
     Route: 064
     Dates: start: 20140326, end: 20140528
  3. ROZEREM [Concomitant]
     Active Substance: RAMELTEON
     Route: 064
     Dates: start: 20140709, end: 20140719
  4. ABILIFY [Concomitant]
     Active Substance: ARIPIPRAZOLE
     Route: 064
     Dates: start: 20131106, end: 20140312
  5. PL [Concomitant]
     Active Substance: ACETAMINOPHEN\CAFFEINE\PROMETHAZINE\SALICYLAMIDE
     Route: 064
     Dates: start: 20140220, end: 20140227
  6. ROHYPNOL [Concomitant]
     Active Substance: FLUNITRAZEPAM
     Route: 064
     Dates: start: 20131106, end: 20140528
  7. KAMISHOYOSAN [Concomitant]
     Route: 064
     Dates: start: 20140604, end: 20140618
  8. LASIX [Concomitant]
     Active Substance: FUROSEMIDE
     Route: 064
     Dates: start: 20140409, end: 20140625
  9. RISPERDAL [Concomitant]
     Active Substance: RISPERIDONE
     Route: 064
     Dates: start: 20140326, end: 20140416
  10. MYSLEE [Suspect]
     Active Substance: ZOLPIDEM TARTRATE
     Indication: SLEEP DISORDER
     Route: 064
     Dates: start: 20131218, end: 20140813
  11. WYPAX [Concomitant]
     Active Substance: LORAZEPAM
     Route: 064
     Dates: start: 20131106, end: 20140430
  12. HALCION [Concomitant]
     Active Substance: TRIAZOLAM
     Route: 064
     Dates: start: 20131106, end: 20140115
  13. PRIMPERAN [Suspect]
     Active Substance: METOCLOPRAMIDE HYDROCHLORIDE
     Indication: UPPER RESPIRATORY TRACT INFLAMMATION
     Route: 064
     Dates: start: 20131106, end: 20140115
  14. FLOMOX [Concomitant]
     Active Substance: CEFCAPENE PIVOXIL HYDROCHLORIDE HYDRATE
     Route: 064
     Dates: start: 20140220, end: 20140227
  15. LENDORMIN DAINIPPO [Concomitant]
     Active Substance: BROTIZOLAM
     Route: 064
     Dates: start: 20140312, end: 20140513
  16. DOGMATYL [Suspect]
     Active Substance: SULPIRIDE
     Indication: GASTROOESOPHAGEAL REFLUX DISEASE
     Route: 064
     Dates: start: 20140212, end: 20140401
  17. SEROQUEL [Suspect]
     Active Substance: QUETIAPINE FUMARATE
     Indication: BIPOLAR I DISORDER
     Route: 064
     Dates: start: 20140324, end: 20140324
  18. BLOPRESS [Concomitant]
     Active Substance: CANDESARTAN CILEXETIL
     Route: 064
     Dates: start: 20131106, end: 20140528
  19. LAMICTAL [Concomitant]
     Active Substance: LAMOTRIGINE
     Route: 064
     Dates: start: 20140312, end: 20140528

REACTIONS (2)
  - Neonatal respiratory distress syndrome [Recovered/Resolved]
  - Foetal exposure during pregnancy [Unknown]

NARRATIVE: CASE EVENT DATE: 20140822
